FAERS Safety Report 8203704-8 (Version None)
Quarter: 2012Q1

REPORT INFORMATION
  Report Type: 
  Country: None (occurrence: None)
  Receive Date: 20120313
  Receipt Date: 20120305
  Transmission Date: 20120608
  Serious: Yes (Other)
  Sender: FDA-Public Use
  Company Number: US-BAYER-2012-014061

PATIENT
  Age: 35 Year
  Sex: Female
  Weight: 87.982 kg

DRUGS (4)
  1. MIRENA [Suspect]
     Indication: MENORRHAGIA
     Dosage: 20 MCG/24HR, CONT
     Route: 015
     Dates: start: 20120118, end: 20120126
  2. MIRENA [Suspect]
     Indication: DYSMENORRHOEA
  3. ALBUTEROL [Concomitant]
     Indication: ASTHMA
     Dosage: UNK UNK, PRN
  4. ADVAIR DISKUS 100/50 [Concomitant]
     Indication: ASTHMA
     Dosage: UNK UNK, QD

REACTIONS (2)
  - MEDICAL DEVICE DISCOMFORT [None]
  - DEVICE DISLOCATION [None]
